FAERS Safety Report 8471742 (Version 2)
Quarter: 2016Q4

REPORT INFORMATION
  Report Type: Report from Study
  Country: US (occurrence: US)
  Receive Date: 20120322
  Receipt Date: 20161004
  Transmission Date: 20170207
  Serious: Yes (Hospitalization, Other)
  Sender: FDA-Public Use
  Company Number: US-ROCHE-1051080

PATIENT
  Age: 59 Year
  Sex: Female

DRUGS (7)
  1. BEVACIZUMAB [Suspect]
     Active Substance: BEVACIZUMAB
     Indication: FALLOPIAN TUBE CANCER
     Route: 042
     Dates: start: 20110701
  2. CARBOPLATIN. [Suspect]
     Active Substance: CARBOPLATIN
     Indication: FALLOPIAN TUBE CANCER
     Dosage: 6 AUC
     Route: 042
     Dates: start: 20110701
  3. TEMSIROLIMUS [Suspect]
     Active Substance: TEMSIROLIMUS
     Indication: FALLOPIAN TUBE CANCER
     Dosage: ON DAYS 1, 8, 15 AND 22, ALSO RECEIVED ON 22/JUL/2011, 12/AUG/2011, 07/SEP/2011, 30/SEP/2011, 26/OCT
     Route: 042
     Dates: start: 20110701
  4. BEVACIZUMAB [Suspect]
     Active Substance: BEVACIZUMAB
     Dosage: OVER 30-90 MINS ON DAY 1?LAST DOSE PRIOR TO SAE: 28/DEC/2011
     Route: 042
     Dates: start: 20111207
  5. BEVACIZUMAB [Suspect]
     Active Substance: BEVACIZUMAB
     Dosage: OVER 30-90 MINS ON DAY 1, ALSO RECEIVED ON 12/AUG/2011, 30/SEP/2011, 26/OCT/2011 AND 16/NOV/2011
     Route: 042
     Dates: start: 20110722
  6. PACLITAXEL. [Suspect]
     Active Substance: PACLITAXEL
     Indication: FALLOPIAN TUBE CANCER
     Route: 042
     Dates: start: 20110701
  7. VELIPARIB [Suspect]
     Active Substance: VELIPARIB
     Indication: FALLOPIAN TUBE CANCER
     Dosage: ON DAYS 1-21
     Route: 048
     Dates: start: 20110701

REACTIONS (4)
  - Hypertension [Recovered/Resolved]
  - Headache [Unknown]
  - Vision blurred [Unknown]
  - Neutrophil count decreased [Unknown]

NARRATIVE: CASE EVENT DATE: 20120112
